FAERS Safety Report 8570881-9 (Version None)
Quarter: 2012Q3

REPORT INFORMATION
  Report Type: 
  Country: None (occurrence: None)
  Receive Date: 20120806
  Receipt Date: 20120726
  Transmission Date: 20120928
  Serious: Yes (Hospitalization)
  Sender: FDA-Public Use
  Company Number: US-BIOGENIDEC-2012BI024966

PATIENT
  Age: 57 Year
  Sex: Female

DRUGS (2)
  1. AVONEX [Suspect]
     Indication: MULTIPLE SCLEROSIS
     Route: 030
  2. AVONEX [Suspect]
     Route: 030
     Dates: start: 20051102

REACTIONS (5)
  - SKIN ULCER [None]
  - BLOOD POTASSIUM DECREASED [None]
  - STAPHYLOCOCCAL INFECTION [None]
  - FLUID RETENTION [None]
  - CELLULITIS [None]
